FAERS Safety Report 6623789-X (Version None)
Quarter: 2010Q1

REPORT INFORMATION
  Report Type: 
  Country: None (occurrence: None)
  Receive Date: 20100310
  Receipt Date: 20100224
  Transmission Date: 20100710
  Serious: Yes (Other)
  Sender: FDA-Public Use
  Company Number: PHHY2010JP10842

PATIENT
  Age: 40 Year
  Sex: Female
  Weight: 50 kg

DRUGS (2)
  1. TEGRETOL [Suspect]
     Indication: GLOSSOPHARYNGEAL NEURALGIA
     Dosage: 200 MG, DAILY
     Route: 048
  2. LIDOCAINE [Concomitant]
     Indication: GLOSSOPHARYNGEAL NEURALGIA

REACTIONS (5)
  - DIZZINESS [None]
  - GASTRIC ULCER [None]
  - HEADACHE [None]
  - MALAISE [None]
  - NAUSEA [None]
